FAERS Safety Report 7346309-3 (Version None)
Quarter: 2011Q1

REPORT INFORMATION
  Report Type: 
  Country: None (occurrence: None)
  Receive Date: 20110311
  Receipt Date: 20110215
  Transmission Date: 20110831
  Serious: No
  Sender: FDA-Public Use
  Company Number: US-PFIZER INC-2010136024

PATIENT
  Sex: Female
  Weight: 83.9 kg

DRUGS (4)
  1. CARDIZEM [Concomitant]
     Indication: HEART RATE IRREGULAR
     Dosage: UNK
  2. TIKOSYN [Suspect]
     Indication: ATRIAL FIBRILLATION
     Dosage: 250 UG, 2X/DAY
     Dates: start: 20101006
  3. WARFARIN [Concomitant]
     Indication: HEART RATE IRREGULAR
     Dosage: UNK
  4. TIKOSYN [Suspect]
     Indication: HEART RATE IRREGULAR
     Dosage: 250 UG, 2X/DAY
     Route: 048
     Dates: start: 20101001

REACTIONS (3)
  - MUSCLE SPASMS [None]
  - PAIN IN EXTREMITY [None]
  - NASOPHARYNGITIS [None]
